FAERS Safety Report 10004196 (Version 1)
Quarter: 2014Q1

REPORT INFORMATION
  Report Type: Spontaneous
  Country: FR (occurrence: FR)
  Receive Date: 20140312
  Receipt Date: 20140312
  Transmission Date: 20141002
  Serious: Yes (Other)
  Sender: FDA-Public Use
  Company Number: FR-TEVA-466040ISR

PATIENT
  Age: 72 Year
  Sex: Male

DRUGS (2)
  1. OXALIPLATIN TEVA 5MG/ML [Suspect]
     Indication: RECTAL CANCER METASTATIC
     Dosage: 3RD CYCLE
     Dates: start: 20140103, end: 20140103
  2. FOLINATE DE CALCIUM WINTHROP [Suspect]
     Indication: RECTAL CANCER METASTATIC
     Dosage: 3RD CYCLE
     Route: 041
     Dates: start: 20140103, end: 20140103

REACTIONS (5)
  - Infusion related reaction [Recovered/Resolved]
  - Generalised erythema [Recovered/Resolved]
  - Pruritus [Recovered/Resolved]
  - Macroglossia [Recovered/Resolved]
  - Dyspnoea [Recovered/Resolved]
